FAERS Safety Report 24193282 (Version 1)
Quarter: 2024Q3

REPORT INFORMATION
  Report Type: Spontaneous
  Country: US (occurrence: US)
  Receive Date: 20240809
  Receipt Date: 20240809
  Transmission Date: 20241016
  Serious: No
  Sender: ROCHE
  Company Number: US-ROCHE-10000029553

PATIENT
  Age: 69 Year
  Sex: Male
  Weight: 83.91 kg

DRUGS (15)
  1. ACTEMRA ACTPEN [Suspect]
     Active Substance: TOCILIZUMAB
     Indication: Giant cell arteritis
     Dosage: INJECT 162MG SUBCUTANEOUSLY ONCE A WEEK
     Route: 058
  2. ACTEMRA ACTPEN [Suspect]
     Active Substance: TOCILIZUMAB
     Indication: Polymyalgia rheumatica
     Dosage: NEEDLE
     Route: 058
     Dates: start: 2020
  3. PREDNISONE [Suspect]
     Active Substance: PREDNISONE
     Indication: Product used for unknown indication
     Dosage: INJECT 162MG SUBCUTANEOUSLY ONCE A WEEK
     Route: 048
     Dates: start: 202002, end: 2020
  4. LISINOPRIL [Suspect]
     Active Substance: LISINOPRIL
     Indication: Hypertension
     Dosage: INJECT 162MG SUBCUTANEOUSLY ONCE A WEEK
     Route: 048
  5. LABETALOL [Concomitant]
     Active Substance: LABETALOL\LABETALOL HYDROCHLORIDE
     Indication: Hypertension
     Dosage: 1 IN THE MORNING WHEN HE WAKES UP, 1 OTHER, AND 1 BEFORE HE GOES TO?BED
     Route: 048
  6. LASIX [Concomitant]
     Active Substance: FUROSEMIDE
     Indication: Hypertension
     Route: 048
  7. LANSOPRAZOLE [Concomitant]
     Active Substance: LANSOPRAZOLE
     Route: 048
  8. VITAMIN D3 K2 [Concomitant]
     Route: 048
  9. IRON [Concomitant]
     Active Substance: IRON
     Route: 048
  10. HERBALS\TURMERIC [Concomitant]
     Active Substance: HERBALS\TURMERIC
     Indication: Arthralgia
     Route: 048
  11. LOSARTAN [Concomitant]
     Active Substance: LOSARTAN\LOSARTAN POTASSIUM
     Indication: Hypertension
     Route: 048
  12. LEVOTHYROXINE [Concomitant]
     Active Substance: LEVOTHYROXINE\LEVOTHYROXINE SODIUM
     Route: 048
  13. EZETIMIBE [Concomitant]
     Active Substance: EZETIMIBE
     Route: 048
  14. LIVER SUPPORT MILK THISTLE [Concomitant]
     Route: 048
  15. PROBIOTIC BLEND [Concomitant]
     Route: 048

REACTIONS (6)
  - Needle issue [Unknown]
  - Cough [Recovered/Resolved]
  - Wrong technique in device usage process [Unknown]
  - Product complaint [Unknown]
  - Hernia [Not Recovered/Not Resolved]
  - Arthralgia [Unknown]
